FAERS Safety Report 13964322 (Version 1)
Quarter: 2017Q3

REPORT INFORMATION
  Report Type: Report from Study
  Country: US (occurrence: US)
  Receive Date: 20170913
  Receipt Date: 20170913
  Transmission Date: 20171128
  Serious: Yes (Hospitalization, Other)
  Sender: FDA-Public Use
  Company Number: US-BAYER-2017-169178

PATIENT
  Sex: Female

DRUGS (1)
  1. GADOVIST [Suspect]
     Active Substance: GADOBUTROL
     Indication: NUCLEAR MAGNETIC RESONANCE IMAGING
     Dosage: UNK UNK, ONCE
     Dates: start: 20160608, end: 20160608

REACTIONS (9)
  - Infusion site extravasation [None]
  - Chest pain [None]
  - Chest discomfort [None]
  - Limb mass [None]
  - Cough [None]
  - Pain [None]
  - Limb discomfort [None]
  - Pain in extremity [None]
  - Muscle tightness [None]

NARRATIVE: CASE EVENT DATE: 20160608
